FAERS Safety Report 6595890-0 (Version None)
Quarter: 2010Q1

REPORT INFORMATION
  Report Type: 
  Country: None (occurrence: None)
  Receive Date: 20100219
  Receipt Date: 20100219
  Transmission Date: 20100710
  Serious: Yes (Disabling)
  Sender: FDA-Public Use
  Company Number: None

PATIENT
  Age: 57 Year
  Sex: Female

DRUGS (2)
  1. GENTAMICIN [Suspect]
     Indication: CELLULITIS
     Dosage: INTRAVENOUS ONCE PER DAY IV
     Route: 042
     Dates: start: 20081124, end: 20081208
  2. GENTAMICIN [Suspect]
     Indication: STAPHYLOCOCCAL INFECTION
     Dosage: INTRAVENOUS ONCE PER DAY IV
     Route: 042
     Dates: start: 20081124, end: 20081208

REACTIONS (6)
  - DIZZINESS [None]
  - DRUG TOXICITY [None]
  - DYSSTASIA [None]
  - GAIT DISTURBANCE [None]
  - VESTIBULAR DISORDER [None]
  - VISUAL IMPAIRMENT [None]
